FAERS Safety Report 7533310-X (Version None)
Quarter: 2011Q2

REPORT INFORMATION
  Report Type: 
  Country: None (occurrence: None)
  Receive Date: 20110608
  Receipt Date: 20050919
  Transmission Date: 20111010
  Serious: Yes (Hospitalization)
  Sender: FDA-Public Use
  Company Number: PHHO2005CA13632

PATIENT
  Sex: Male

DRUGS (3)
  1. SANDOSTATIN [Suspect]
     Dosage: 100 MG, TID
     Route: 058
     Dates: start: 20050301
  2. RAMIPRIL [Concomitant]
  3. NITROGLYCERIN [Concomitant]

REACTIONS (6)
  - ARTERIAL THROMBOSIS [None]
  - DYSPNOEA [None]
  - MYOCARDIAL INFARCTION [None]
  - VENTRICULAR TACHYCARDIA [None]
  - HYPERHIDROSIS [None]
  - CHEST PAIN [None]
